FAERS Safety Report 7021656-3 (Version None)
Quarter: 2010Q3

REPORT INFORMATION
  Report Type: 
  Country: None (occurrence: None)
  Receive Date: 20100928
  Receipt Date: 20100914
  Transmission Date: 20110219
  Serious: Yes (Other)
  Sender: FDA-Public Use
  Company Number: AUR-APL-2010-02350

PATIENT
  Age: 56 Year
  Sex: Female
  Weight: 87.5 kg

DRUGS (1)
  1. TERBINAFINE HCL [Suspect]
     Dosage: 250-UNK-ORAL
     Route: 048
     Dates: start: 20100706, end: 20100801

REACTIONS (3)
  - ANAL HAEMORRHAGE [None]
  - COLITIS ULCERATIVE [None]
  - CONDITION AGGRAVATED [None]
